FAERS Safety Report 5293363-9 (Version None)
Quarter: 2007Q2

REPORT INFORMATION
  Report Type: 
  Country: None (occurrence: None)
  Receive Date: 20070411
  Receipt Date: 20070330
  Transmission Date: 20071010
  Serious: Yes (Disabling, Other)
  Sender: FDA-Public Use
  Company Number: HQWYE278202APR07

PATIENT
  Sex: Male

DRUGS (4)
  1. EFFEXOR [Suspect]
     Route: 048
     Dates: start: 20040101
  2. EFFEXOR XR [Suspect]
     Route: 048
     Dates: start: 20000101, end: 20010101
  3. EFFEXOR XR [Suspect]
     Route: 048
     Dates: start: 20010101, end: 20040101
  4. BROMAZEPAM [Concomitant]
     Indication: ANXIETY
     Route: 048

REACTIONS (7)
  - AMNESIA [None]
  - BLINDNESS [None]
  - CONDITION AGGRAVATED [None]
  - GOITRE [None]
  - HYPERMETROPIA [None]
  - OPTIC NERVE DISORDER [None]
  - PROSTATE EXAMINATION ABNORMAL [None]
